FAERS Safety Report 4717040-5 (Version None)
Quarter: 2005Q3

REPORT INFORMATION
  Report Type: 
  Country: None (occurrence: None)
  Receive Date: 20050715
  Receipt Date: 20050707
  Transmission Date: 20060218
  Serious: Yes (Other)
  Sender: FDA-Public Use
  Company Number: 2005098609

PATIENT
  Age: 51 Year
  Sex: Female

DRUGS (1)
  1. XALATAN [Suspect]
     Indication: GLAUCOMA
     Dosage: 1 DROP (DAILY), OPHTHALMIC
     Route: 047
     Dates: start: 19990220, end: 20050501

REACTIONS (1)
  - GLAUCOMA SURGERY [None]
